FAERS Safety Report 25231628 (Version 3)
Quarter: 2025Q3

REPORT INFORMATION
  Report Type: Spontaneous
  Country: US (occurrence: US)
  Receive Date: 20250423
  Receipt Date: 20250715
  Transmission Date: 20251020
  Serious: Yes (Life-Threatening, Hospitalization, Other)
  Sender: BIOMARIN
  Company Number: US-SA-2025SA110062

PATIENT
  Age: 3 Month
  Sex: Male
  Weight: 8.37 kg

DRUGS (6)
  1. LARONIDASE [Suspect]
     Active Substance: LARONIDASE
     Indication: Mucopolysaccharidosis I
     Dosage: 3.77 UNITS UNSPECIFIED QW
     Dates: start: 202502
  2. LARONIDASE [Suspect]
     Active Substance: LARONIDASE
     Dosage: 3.944 MG, QW
  3. ZOFRAN [Concomitant]
     Active Substance: ONDANSETRON HYDROCHLORIDE
     Indication: Prophylaxis of nausea and vomiting
     Dates: start: 20250218, end: 20250225
  4. KEPPRA [Concomitant]
     Active Substance: LEVETIRACETAM
     Indication: Seizure prophylaxis
     Dates: start: 20250218, end: 20250223
  5. MESNA [Concomitant]
     Active Substance: MESNA
     Indication: Prophylaxis
     Dates: start: 20250218, end: 20250218
  6. CYTOXAN [Concomitant]
     Active Substance: CYCLOPHOSPHAMIDE
     Indication: Chemotherapy
     Dates: start: 20250218, end: 20250218

REACTIONS (2)
  - Cytomegalovirus viraemia [Recovering/Resolving]
  - Transplant failure [Recovering/Resolving]

NARRATIVE: CASE EVENT DATE: 20250101
